FAERS Safety Report 18330054 (Version 2)
Quarter: 2021Q1

REPORT INFORMATION
  Report Type: Spontaneous
  Country: US (occurrence: US)
  Receive Date: 20200930
  Receipt Date: 20210103
  Transmission Date: 20210419
  Serious: No
  Sender: FDA-Public Use
  Company Number: US-SA-2020SA267421

PATIENT

DRUGS (1)
  1. DUPIXENT [Suspect]
     Active Substance: DUPILUMAB
     Indication: DERMATITIS ATOPIC
     Dosage: 300 MG, QOW
     Route: 058
     Dates: start: 20200804

REACTIONS (3)
  - Blood pressure increased [Not Recovered/Not Resolved]
  - Alopecia [Unknown]
  - Eczema [Unknown]

NARRATIVE: CASE EVENT DATE: 2020
